FAERS Safety Report 9482702 (Version 1)
Quarter: 2013Q3

REPORT INFORMATION
  Report Type: Spontaneous
  Country: CN (occurrence: CN)
  Receive Date: 20130828
  Receipt Date: 20130828
  Transmission Date: 20140515
  Serious: Yes (Other)
  Sender: FDA-Public Use
  Company Number: CN-JNJFOC-20130812148

PATIENT
  Sex: 0

DRUGS (1)
  1. RISPERIDONE [Suspect]
     Indication: SCHIZOPHRENIA
     Route: 048

REACTIONS (11)
  - Ventricular fibrillation [Unknown]
  - Ventricular flutter [Unknown]
  - Atrial fibrillation [Unknown]
  - Atrial flutter [Unknown]
  - Sinus arrhythmia [Unknown]
  - Electrocardiogram QT prolonged [Unknown]
  - Ventricular extrasystoles [Unknown]
  - Supraventricular extrasystoles [Unknown]
  - Electrocardiogram PR prolongation [Unknown]
  - Sinus tachycardia [Unknown]
  - Sinus bradycardia [Unknown]
